FAERS Safety Report 9869555 (Version 3)
Quarter: 2014Q1

REPORT INFORMATION
  Report Type: Spontaneous
  Country: US (occurrence: US)
  Receive Date: 20140205
  Receipt Date: 20140314
  Transmission Date: 20141002
  Serious: Yes (Hospitalization)
  Sender: FDA-Public Use
  Company Number: US-BRISTOL-MYERS SQUIBB COMPANY-20126983

PATIENT
  Age: 42 Year
  Sex: Female

DRUGS (6)
  1. ABILIFY [Suspect]
     Dosage: 15 MG ORALLY (P0) DAILY (00) X 14 DAYS?RESUMED ON 03FE14-
     Route: 048
     Dates: start: 20130513
  2. ABILIFY MAINTENA INJECTION [Suspect]
     Indication: SCHIZOPHRENIA
     Route: 030
     Dates: start: 20131104, end: 20131210
  3. LUNESTA [Concomitant]
  4. KLONOPIN [Concomitant]
  5. PRISTIQ [Concomitant]
  6. LYRICA [Concomitant]
     Dosage: DECREASED TO 75MG,THREE TIMES DAILY

REACTIONS (6)
  - Convulsion [Recovered/Resolved]
  - Blood pressure increased [Recovered/Resolved]
  - Dehydration [Recovered/Resolved]
  - Acute prerenal failure [Recovered/Resolved]
  - Hypokalaemia [Recovered/Resolved]
  - Urinary tract infection [Recovered/Resolved]
